FAERS Safety Report 23480495 (Version 3)
Quarter: 2024Q1

REPORT INFORMATION
  Report Type: Report from Study
  Country: CA (occurrence: CA)
  Receive Date: 20240205
  Receipt Date: 20240331
  Transmission Date: 20240409
  Serious: Yes (Death, Hospitalization, Other)
  Sender: FDA-Public Use
  Company Number: CA-002147023-NVSC2022CA024321

PATIENT
  Age: 71 Year
  Sex: Female

DRUGS (4)
  1. ERELZI [Suspect]
     Active Substance: ETANERCEPT-SZZS
     Indication: Rheumatoid arthritis
     Dosage: 50 MG, QW
     Route: 058
     Dates: start: 20211209
  2. ZAROXOLYN [Suspect]
     Active Substance: METOLAZONE
     Indication: Product used for unknown indication
     Dosage: UNK
     Route: 065
     Dates: end: 202209
  3. ENBREL [Concomitant]
     Active Substance: ETANERCEPT
     Indication: Product used for unknown indication
     Dosage: 1 DOSAGE FORM, QW
     Route: 058
     Dates: start: 2011
  4. HUMIRA [Concomitant]
     Active Substance: ADALIMUMAB
     Indication: Product used for unknown indication
     Dosage: 1 DOSAGE FORM, BIW
     Route: 058
     Dates: start: 2011

REACTIONS (21)
  - Death [Fatal]
  - Vaginal cancer [Unknown]
  - Respiratory disorder [Unknown]
  - Metastases to peritoneum [Unknown]
  - Transfusion-related circulatory overload [Unknown]
  - Nephrolithiasis [Unknown]
  - Renal failure [Unknown]
  - Arthralgia [Unknown]
  - Pain in extremity [Unknown]
  - Osteoarthritis [Unknown]
  - Asthenia [Unknown]
  - Gait disturbance [Unknown]
  - General physical health deterioration [Unknown]
  - Dysstasia [Unknown]
  - Back disorder [Unknown]
  - Pollakiuria [Unknown]
  - Arthritis [Unknown]
  - Oedema [Unknown]
  - Renal function test abnormal [Unknown]
  - Loss of personal independence in daily activities [Unknown]
  - Cardiac valve disease [Unknown]

NARRATIVE: CASE EVENT DATE: 20220701
